FAERS Safety Report 10057264 (Version 2)
Quarter: 2014Q2

REPORT INFORMATION
  Report Type: Spontaneous
  Country: CH (occurrence: CH)
  Receive Date: 20140403
  Receipt Date: 20140509
  Transmission Date: 20141212
  Serious: Yes (Hospitalization, Other)
  Sender: FDA-Public Use
  Company Number: CH-SUCAMPO PHARMA AMERICAS, INC-SPI201400231

PATIENT
  Sex: Female
  Weight: 63 kg

DRUGS (9)
  1. AMITIZA [Suspect]
     Indication: CONSTIPATION
     Dosage: UNK
  2. AMITIZA [Interacting]
     Indication: CONSTIPATION
  3. ADARTEL [Interacting]
     Indication: RESTLESS LEGS SYNDROME
     Dosage: 2 MG, UNK
  4. TRAMAL [Concomitant]
     Dosage: 1 G, QD
  5. NEXIUM [Concomitant]
     Dosage: 40 MG, QD
  6. TAFALGAN [Concomitant]
     Dosage: 100 MG, QD
  7. EFFEXOR [Concomitant]
     Dosage: 75 MG, QD
  8. XARELTO [Concomitant]
     Dosage: 20 MG, QD
  9. STILNOX [Concomitant]
     Dosage: 6.25 MG, QD

REACTIONS (9)
  - Thought blocking [Recovered/Resolved]
  - Vertigo [Recovered/Resolved]
  - Arthralgia [Recovered/Resolved]
  - Chills [Recovered/Resolved]
  - Malaise [Recovered/Resolved]
  - Weight increased [Recovered/Resolved]
  - Drug interaction [Recovered/Resolved]
  - Flatulence [Recovered/Resolved]
  - Headache [Recovered/Resolved]
